FAERS Safety Report 6790364-6 (Version None)
Quarter: 2010Q2

REPORT INFORMATION
  Report Type: 
  Country: None (occurrence: None)
  Receive Date: 20100624
  Receipt Date: 20100611
  Transmission Date: 20101027
  Serious: Yes (Hospitalization, Other)
  Sender: FDA-Public Use
  Company Number: PHEH2009US18317

PATIENT
  Sex: Female

DRUGS (7)
  1. EXJADE [Suspect]
     Indication: IRON OVERLOAD
     Dosage: 1750 MG, QD
     Route: 048
     Dates: end: 20090930
  2. NICOTINE [Concomitant]
     Dosage: 14 MG/ 24 HOURS
  3. FOLIC ACID [Concomitant]
     Dosage: 1 MG, QD
     Route: 048
  4. PEPCID [Concomitant]
     Dosage: 20 MG, BID
     Route: 048
  5. BENADRYL [Concomitant]
     Dosage: 25 MG, Q6H
     Route: 042
  6. BENADRYL [Concomitant]
     Dosage: 25 MG, Q8H
     Route: 048
  7. BENADRYL [Concomitant]
     Dosage: 50 MG, QH

REACTIONS (6)
  - ABORTION SPONTANEOUS [None]
  - DRUG EXPOSURE DURING PREGNANCY [None]
  - HAEMORRHAGE [None]
  - INTRA-UTERINE DEATH [None]
  - UTERINE DILATION AND CURETTAGE [None]
  - VAGINAL LACERATION [None]
